FAERS Safety Report 21328134 (Version 1)
Quarter: 2022Q3

REPORT INFORMATION
  Report Type: Spontaneous
  Country: ID (occurrence: ID)
  Receive Date: 20220913
  Receipt Date: 20220913
  Transmission Date: 20221026
  Serious: Yes (Hospitalization)
  Sender: FDA-Public Use
  Company Number: ID-BAYER-2022P012933

PATIENT
  Age: 60 Year
  Sex: Male

DRUGS (1)
  1. NEXAVAR [Suspect]
     Active Substance: SORAFENIB
     Indication: Hepatocellular carcinoma
     Dosage: 200 MG, BID
     Route: 048
     Dates: start: 20220819

REACTIONS (6)
  - Diarrhoea [None]
  - Nausea [None]
  - Vomiting [None]
  - Headache [None]
  - Abdominal distension [None]
  - Off label use [None]

NARRATIVE: CASE EVENT DATE: 20220819
